FAERS Safety Report 23426928 (Version 2)
Quarter: 2024Q1

REPORT INFORMATION
  Report Type: Report from Study
  Country: CA (occurrence: None)
  Receive Date: 20240122
  Receipt Date: 20240209
  Transmission Date: 20240410
  Serious: Yes (Other)
  Sender: FDA-Public Use
  Company Number: CA-PFIZER INC-202400014674

PATIENT
  Age: 87 Year
  Sex: Female

DRUGS (23)
  1. METHOTREXATE [Suspect]
     Active Substance: METHOTREXATE
     Indication: Product used for unknown indication
  2. ETANERCEPT [Suspect]
     Active Substance: ETANERCEPT
     Indication: Product used for unknown indication
  3. XELJANZ [Suspect]
     Active Substance: TOFACITINIB CITRATE
     Indication: Product used for unknown indication
  4. ACTEMRA [Suspect]
     Active Substance: TOCILIZUMAB
     Indication: Rheumatoid arthritis
  5. ACTEMRA [Suspect]
     Active Substance: TOCILIZUMAB
  6. ACTEMRA [Suspect]
     Active Substance: TOCILIZUMAB
  7. ACTEMRA [Suspect]
     Active Substance: TOCILIZUMAB
  8. ARAVA [Suspect]
     Active Substance: LEFLUNOMIDE
     Indication: Product used for unknown indication
  9. ORENCIA [Suspect]
     Active Substance: ABATACEPT
     Indication: Product used for unknown indication
  10. SIMPONI [Suspect]
     Active Substance: GOLIMUMAB
     Indication: Product used for unknown indication
  11. APIXABAN [Concomitant]
     Active Substance: APIXABAN
  12. BISOPROLOL [Concomitant]
     Active Substance: BISOPROLOL\BISOPROLOL FUMARATE
  13. COLCHICINE [Concomitant]
     Active Substance: COLCHICINE
  14. DIGOXIN [Concomitant]
     Active Substance: DIGOXIN
  15. FUROSEMIDE [Concomitant]
     Active Substance: FUROSEMIDE
  16. GABAPENTIN [Concomitant]
     Active Substance: GABAPENTIN
  17. HYDROMORPHONE [Concomitant]
     Active Substance: HYDROMORPHONE
  18. LEFLUNOMIDE [Concomitant]
     Active Substance: LEFLUNOMIDE
  19. PANTOPRAZOLE [Concomitant]
     Active Substance: PANTOPRAZOLE
  20. PREDNISONE [Concomitant]
     Active Substance: PREDNISONE
  21. RABEPRAZOLE [Concomitant]
     Active Substance: RABEPRAZOLE
  22. ROSUVASTATIN CALCIUM [Concomitant]
     Active Substance: ROSUVASTATIN CALCIUM
  23. TYLENOL [Concomitant]
     Active Substance: ACETAMINOPHEN

REACTIONS (20)
  - Drug ineffective [Recovering/Resolving]
  - Treatment failure [Recovering/Resolving]
  - Arthralgia [Recovering/Resolving]
  - Atrial fibrillation [Recovering/Resolving]
  - Cough [Recovering/Resolving]
  - Discomfort [Recovering/Resolving]
  - Fatigue [Recovering/Resolving]
  - Interstitial lung disease [Recovering/Resolving]
  - Joint stiffness [Recovering/Resolving]
  - Joint swelling [Recovering/Resolving]
  - Rheumatoid arthritis [Recovering/Resolving]
  - Swelling [Recovering/Resolving]
  - Tooth abscess [Recovering/Resolving]
  - Bone swelling [Recovering/Resolving]
  - Dyspnoea [Recovering/Resolving]
  - Loss of personal independence in daily activities [Recovering/Resolving]
  - Oedema [Recovering/Resolving]
  - Pain [Recovering/Resolving]
  - Rheumatoid nodule [Recovering/Resolving]
  - Wrist deformity [Recovering/Resolving]
